FAERS Safety Report 7629603-8 (Version None)
Quarter: 2011Q3

REPORT INFORMATION
  Report Type: 
  Country: None (occurrence: None)
  Receive Date: 20110722
  Receipt Date: 20110704
  Transmission Date: 20111222
  Serious: No
  Sender: FDA-Public Use
  Company Number: US-B.I. PHARMACEUTICALS,INC./RIDGEFIELD-2011-BP-17025BP

PATIENT
  Sex: Female

DRUGS (1)
  1. ZANTAC 150 [Suspect]
     Indication: HYPERSENSITIVITY
     Dosage: 150 MG
     Route: 048
     Dates: start: 20110601

REACTIONS (1)
  - INTRAOCULAR PRESSURE TEST ABNORMAL [None]
